FAERS Safety Report 4871289-X (Version None)
Quarter: 2005Q4

REPORT INFORMATION
  Report Type: 
  Country: None (occurrence: None)
  Receive Date: 20051229
  Receipt Date: 20051213
  Transmission Date: 20060501
  Serious: Yes (Life-Threatening, Hospitalization)
  Sender: FDA-Public Use
  Company Number: 2005-DE-05462GD

PATIENT
  Age: 5 Month
  Sex: Female
  Weight: 3.8 kg

DRUGS (2)
  1. METHADONE HCL [Suspect]
     Dosage: VIA BREASTMILK, PO
     Route: 048
  2. VICODIN [Suspect]
     Dosage: VIA BREASTMILK, PO
     Route: 048

REACTIONS (9)
  - APNOEA [None]
  - COUGH [None]
  - CYANOSIS [None]
  - DEPRESSED LEVEL OF CONSCIOUSNESS [None]
  - DRUG EXPOSURE VIA BREAST MILK [None]
  - DRUG SCREEN POSITIVE [None]
  - IRRITABILITY [None]
  - RESPIRATORY DEPRESSION [None]
  - RHINORRHOEA [None]
